FAERS Safety Report 4874106-7 (Version None)
Quarter: 2006Q1

REPORT INFORMATION
  Report Type: 
  Country: None (occurrence: None)
  Receive Date: 20060106
  Receipt Date: 20051228
  Transmission Date: 20060701
  Serious: Yes (Hospitalization)
  Sender: FDA-Public Use
  Company Number: US-JNJFOC-20060100185

PATIENT
  Sex: Male

DRUGS (4)
  1. EXTRA STRENGTH TYLENOL [Suspect]
     Route: 048
  2. EXTRA STRENGTH TYLENOL [Suspect]
     Indication: HEADACHE
     Route: 048
  3. LESCOL [Concomitant]
  4. NEXIUM [Concomitant]

REACTIONS (7)
  - ERYTHEMA [None]
  - EYE SWELLING [None]
  - PRURITUS [None]
  - REACTION TO DRUG EXCIPIENTS [None]
  - SWELLING FACE [None]
  - THROAT TIGHTNESS [None]
  - URTICARIA [None]
